FAERS Safety Report 12085520 (Version 2)
Quarter: 2016Q1

REPORT INFORMATION
  Report Type: Spontaneous
  Country: BR (occurrence: BR)
  Receive Date: 20160217
  Receipt Date: 20160301
  Transmission Date: 20160526
  Serious: Yes (Death)
  Sender: FDA-Public Use
  Company Number: BR-PFIZER INC-2016097186

PATIENT
  Sex: Male

DRUGS (2)
  1. FIBRASE [Suspect]
     Active Substance: CHLORAMPHENICOL
     Indication: WOUND
  2. FIBRASE [Suspect]
     Active Substance: CHLORAMPHENICOL
     Indication: ESCHAR
     Dosage: UNK
     Dates: end: 201510

REACTIONS (2)
  - Eschar [Fatal]
  - Condition aggravated [Fatal]
